FAERS Safety Report 8578398-2 (Version None)
Quarter: 2012Q3

REPORT INFORMATION
  Report Type: 
  Country: None (occurrence: None)
  Receive Date: 20120726
  Receipt Date: 20120711
  Transmission Date: 20120928
  Serious: Yes (Other)
  Sender: FDA-Public Use
  Company Number: FK201201942

PATIENT
  Age: 48 Year
  Sex: Female

DRUGS (7)
  1. CLOZAPINE [Concomitant]
  2. HALOPERIDOL [Suspect]
     Indication: AGITATION
     Dosage: 5 MG, AS NEEDED, INTRAVENOUS (NOT OTHERWISE SPECIFIED)
     Route: 042
  3. LAMOTRIGINE [Concomitant]
  4. PAROXETINE HYDROCHLORIDE [Concomitant]
  5. HEPARIN [Concomitant]
  6. PANTOPRAZOLE [Concomitant]
  7. DIPHENHYDRAMINE HCL [Concomitant]

REACTIONS (8)
  - UNRESPONSIVE TO STIMULI [None]
  - PYREXIA [None]
  - SOCIAL AVOIDANT BEHAVIOUR [None]
  - LEUKOCYTOSIS [None]
  - MUSCLE RIGIDITY [None]
  - CATATONIA [None]
  - MUTISM [None]
  - BLOOD CREATINE PHOSPHOKINASE INCREASED [None]
